FAERS Safety Report 9958127 (Version 1)
Quarter: 2014Q1

REPORT INFORMATION
  Report Type: Report from Study
  Country: US (occurrence: US)
  Receive Date: 20140304
  Receipt Date: 20140304
  Transmission Date: 20141002
  Serious: No
  Sender: FDA-Public Use
  Company Number: US-ABBVIE-13P-163-1095080-00

PATIENT
  Age: 37 Year
  Sex: Male

DRUGS (4)
  1. HUMIRA [Suspect]
     Indication: PSORIATIC ARTHROPATHY
     Dates: start: 201111
  2. UNKNOWN PAIN MEDICATION [Concomitant]
     Indication: PRODUCT USED FOR UNKNOWN INDICATION
  3. UNKNOWN EYE DROPS [Concomitant]
     Indication: UVEITIS
     Route: 047
  4. GEMFIBROZIL [Concomitant]
     Indication: BLOOD TRIGLYCERIDES

REACTIONS (3)
  - Haematochezia [Recovering/Resolving]
  - Injection site pain [Recovered/Resolved]
  - Injection site haemorrhage [Recovering/Resolving]
